FAERS Safety Report 4784005-7 (Version None)
Quarter: 2005Q3

REPORT INFORMATION
  Report Type: 
  Country: None (occurrence: None)
  Receive Date: 20050927
  Receipt Date: 20050629
  Transmission Date: 20060218
  Serious: No
  Sender: FDA-Public Use
  Company Number: SP00467

PATIENT
  Age: 20 Year
  Sex: Female
  Weight: 48.9885 kg

DRUGS (4)
  1. XIFAXAN [Suspect]
     Indication: CROHN'S DISEASE
     Dosage: 400MG/BID,ORAL
     Route: 048
     Dates: start: 20050616
  2. ENTOCORT [Suspect]
     Dates: end: 20050616
  3. PENTASA [Concomitant]
  4. OMEGA 3 [Concomitant]

REACTIONS (1)
  - RASH [None]
